FAERS Safety Report 5818119-7 (Version None)
Quarter: 2008Q3

REPORT INFORMATION
  Report Type: 
  Country: None (occurrence: None)
  Receive Date: 20080722
  Receipt Date: 20071015
  Transmission Date: 20090109
  Serious: No
  Sender: FDA-Public Use
  Company Number: US-BAYER-US-2007-039121

PATIENT
  Age: 15 Year
  Sex: Male
  Weight: 78 kg

DRUGS (2)
  1. MAGNEVIST [Suspect]
     Indication: NUCLEAR MAGNETIC RESONANCE IMAGING BRAIN
     Dosage: UNIT DOSE: 15.6 ML
     Route: 042
     Dates: start: 20071014, end: 20071014
  2. MAGNEVIST [Suspect]

REACTIONS (1)
  - POST-TUSSIVE VOMITING [None]
